FAERS Safety Report 6208220-0 (Version None)
Quarter: 2009Q2

REPORT INFORMATION
  Report Type: 
  Country: None (occurrence: None)
  Receive Date: 20090522
  Receipt Date: 20090507
  Transmission Date: 20091009
  Serious: Yes (Other)
  Sender: FDA-Public Use
  Company Number: 2009S1008353

PATIENT
  Age: 37 Year
  Sex: Male

DRUGS (2)
  1. SOTALOL HCL [Suspect]
     Indication: ARRHYTHMIA
     Dosage: TWICE A DAY; ORAL
     Route: 048
  2. SALOSPIR /00002701/ [Concomitant]

REACTIONS (1)
  - URINARY INCONTINENCE [None]
